FAERS Safety Report 7460794-8 (Version None)
Quarter: 2011Q2

REPORT INFORMATION
  Report Type: 
  Country: None (occurrence: None)
  Receive Date: 20110427
  Receipt Date: 20110419
  Transmission Date: 20111010
  Serious: Yes (Hospitalization, Other)
  Sender: FDA-Public Use
  Company Number: 012390

PATIENT
  Age: 63 Year
  Sex: Female

DRUGS (10)
  1. FLUDARABINE (FLUDARABINE) [Concomitant]
  2. FOLIC ACID [Concomitant]
  3. PENTAMADINE (PENTAMADINE) [Concomitant]
  4. MELPHALAN HYDROCHLORIDE [Concomitant]
  5. TOPROL (METOPROLOL TARTRATE) [Concomitant]
  6. LASIX [Concomitant]
  7. BUSULFEX [Suspect]
     Indication: STEM CELL TRANSPLANT
     Dosage: INTRAVENOUS
     Route: 042
     Dates: start: 20061017, end: 20061018
  8. ANTI-THYMOCYTE GLOBULIN (ANTI-THYMOCYTE GLOBULIN) [Concomitant]
  9. VALTREX [Concomitant]
  10. AMBIEN [Concomitant]

REACTIONS (7)
  - PULMONARY ARTERIAL HYPERTENSION [None]
  - DIARRHOEA [None]
  - CARDIOMEGALY [None]
  - DYSPNOEA [None]
  - PLEURAL EFFUSION [None]
  - OEDEMA PERIPHERAL [None]
  - DEHYDRATION [None]
